FAERS Safety Report 4470681-5 (Version None)
Quarter: 2004Q4

REPORT INFORMATION
  Report Type: 
  Country: None (occurrence: None)
  Receive Date: 20041006
  Receipt Date: 20041006
  Transmission Date: 20050328
  Serious: Yes (Hospitalization)
  Sender: FDA-Public Use
  Company Number: None

PATIENT
  Sex: Female
  Weight: 91.173 kg

DRUGS (10)
  1. ALL-TRANS-RETINOIC [Suspect]
     Indication: ACUTE PROMYELOCYTIC LEUKAEMIA
     Dosage: 90 MG 14 DAYS Q3 MO BUCCAL
     Route: 002
     Dates: start: 20031201, end: 20031214
  2. PREDNISONE [Concomitant]
  3. PREVACID [Concomitant]
  4. CALCIUM SUPPLEMENTS [Concomitant]
  5. PERCOCETI-2 [Concomitant]
  6. DILAUDID [Concomitant]
  7. ATIVAN [Concomitant]
  8. COMPAZINE [Concomitant]
  9. TYLENOL [Concomitant]
  10. BENADRYL [Concomitant]

REACTIONS (5)
  - BONE PAIN [None]
  - CHEST DISCOMFORT [None]
  - MYALGIA [None]
  - NAUSEA [None]
  - VOMITING [None]
